FAERS Safety Report 24395955 (Version 1)
Quarter: 2024Q4

REPORT INFORMATION
  Report Type: Spontaneous
  Country: FR (occurrence: FR)
  Receive Date: 20241004
  Receipt Date: 20241004
  Transmission Date: 20250115
  Serious: Yes (Death, Life-Threatening, Other)
  Sender: CHEPLAPHARM
  Company Number: None

PATIENT
  Age: 14 Year
  Sex: Female
  Weight: 38 kg

DRUGS (10)
  1. OLANZAPINE [Suspect]
     Active Substance: OLANZAPINE
     Indication: Poisoning deliberate
     Route: 048
     Dates: start: 20240914
  2. OLANZAPINE [Suspect]
     Active Substance: OLANZAPINE
     Indication: Poisoning deliberate
     Dosage: 5 TABLETS OF 7.5 MG OR 37.5 MG
     Route: 048
  3. ACETAMINOPHEN [Suspect]
     Active Substance: ACETAMINOPHEN
     Indication: Poisoning deliberate
     Route: 048
     Dates: start: 20240914
  4. ACETAMINOPHEN [Suspect]
     Active Substance: ACETAMINOPHEN
     Indication: Poisoning deliberate
     Dosage: SUPPOSEDLY TAKING 80 TABLETS OF 500 MG OR 1 G OF DOLIPRANE
     Route: 048
  5. CYAMEMAZINE [Suspect]
     Active Substance: CYAMEMAZINE
     Indication: Poisoning deliberate
     Dosage: ORAL SOLUTION IN DROPS; 15 DROPS TAKEN AS NEEDED AT 6 P.M
     Route: 048
     Dates: start: 20240914
  6. CYAMEMAZINE [Suspect]
     Active Substance: CYAMEMAZINE
     Indication: Poisoning deliberate
     Dosage: 3 DOSES OF 15 DROPS OF TERCIAN (45 MG)
     Route: 048
  7. TRIMEPRAZINE [Suspect]
     Active Substance: TRIMEPRAZINE
     Dosage: 20 MG TAKEN AT 6 P.M
     Dates: start: 20240914
  8. TRIMEBUTINE MALEATE [Suspect]
     Active Substance: TRIMEBUTINE MALEATE
  9. VENLAFAXINE [Suspect]
     Active Substance: VENLAFAXINE HYDROCHLORIDE
     Dates: start: 20240816, end: 20240821
  10. VENLAFAXINE [Suspect]
     Active Substance: VENLAFAXINE HYDROCHLORIDE
     Dosage: 4 PER DAY TAKEN
     Dates: start: 20240914

REACTIONS (10)
  - Intentional overdose [Fatal]
  - Acute hepatic failure [Fatal]
  - Tachycardia [Fatal]
  - Conduction disorder [Fatal]
  - Metabolic encephalopathy [Unknown]
  - Lactic acidosis [Unknown]
  - Hypotension [Unknown]
  - Neurological decompensation [Unknown]
  - Hypoglycaemia [Unknown]
  - Hyperammonaemia [Unknown]

NARRATIVE: CASE EVENT DATE: 20240914
